FAERS Safety Report 19865546 (Version 1)
Quarter: 2021Q3

REPORT INFORMATION
  Report Type: Spontaneous
  Country: US (occurrence: US)
  Receive Date: 20210921
  Receipt Date: 20210921
  Transmission Date: 20211014
  Serious: Yes (Hospitalization)
  Sender: FDA-Public Use
  Company Number: None

PATIENT
  Age: 39 Year
  Sex: Male

DRUGS (5)
  1. ADVAIR DISKU AER 100/50 [Concomitant]
  2. PROVENTIL HFA [Concomitant]
     Active Substance: ALBUTEROL SULFATE
  3. NASONEX [Concomitant]
     Active Substance: MOMETASONE FUROATE
  4. SINGULAIR CHW 4MG [Concomitant]
  5. PULMOZYME [Suspect]
     Active Substance: DORNASE ALFA
     Indication: CYSTIC FIBROSIS LUNG
     Dosage: ?          OTHER FREQUENCY:SEE B.6(PAGE2);OTHER ROUTE:INHALATION?
     Dates: start: 20170812

REACTIONS (1)
  - Pancreatitis [None]

NARRATIVE: CASE EVENT DATE: 20210919
